FAERS Safety Report 18647807 (Version 1)
Quarter: 2020Q4

REPORT INFORMATION
  Report Type: Spontaneous
  Country: FR (occurrence: FR)
  Receive Date: 20201222
  Receipt Date: 20201222
  Transmission Date: 20210114
  Serious: Yes (Hospitalization)
  Sender: FDA-Public Use
  Company Number: FR-BAUSCH-BL-2020-036689

PATIENT
  Age: 70 Year
  Sex: Male
  Weight: 73.5 kg

DRUGS (12)
  1. TAHOR [Suspect]
     Active Substance: ATORVASTATIN CALCIUM
     Indication: DYSLIPIDAEMIA
     Route: 048
     Dates: start: 2014, end: 202011
  2. PANTOPRAZOLE MYLAN [Suspect]
     Active Substance: PANTOPRAZOLE SODIUM
     Indication: PRODUCT USED FOR UNKNOWN INDICATION
     Route: 048
     Dates: start: 2017, end: 202011
  3. PLAVIX [Concomitant]
     Active Substance: CLOPIDOGREL BISULFATE
     Indication: PRODUCT USED FOR UNKNOWN INDICATION
  4. METFORMIN [Suspect]
     Active Substance: METFORMIN HYDROCHLORIDE
     Indication: DIABETES MELLITUS
     Route: 048
     Dates: start: 2014, end: 202011
  5. IRBESARTAN. [Suspect]
     Active Substance: IRBESARTAN
     Indication: HYPERTENSION
     Route: 048
     Dates: start: 2019, end: 202011
  6. EUPRESSYL [Suspect]
     Active Substance: URAPIDIL
     Indication: HYPERTENSION
     Route: 048
     Dates: start: 2014, end: 202011
  7. XATRAL LP [Suspect]
     Active Substance: ALFUZOSIN
     Indication: PROSTATOMEGALY
     Route: 048
     Dates: start: 2014, end: 202011
  8. LERCAN [Suspect]
     Active Substance: LERCANIDIPINE
     Indication: HYPERTENSION
     Route: 048
     Dates: start: 2014, end: 202011
  9. JANUMET [Suspect]
     Active Substance: METFORMIN HYDROCHLORIDE\SITAGLIPTIN PHOSPHATE
     Indication: DIABETES MELLITUS
     Dosage: 50MG/1000MG
     Route: 048
     Dates: start: 2017, end: 202011
  10. AMIKACINE [Suspect]
     Active Substance: AMIKACIN
     Indication: URINARY TRACT INFECTION
     Route: 042
     Dates: start: 20201026, end: 20201108
  11. HYPERIUM [Suspect]
     Active Substance: RILMENIDINE PHOSPHATE
     Indication: HYPERTENSION
     Route: 048
     Dates: start: 2014, end: 202011
  12. CORGARD [Suspect]
     Active Substance: NADOLOL
     Indication: HYPERTENSION
     Dosage: BREAKABLE TABLET
     Route: 048
     Dates: start: 2014, end: 202011

REACTIONS (5)
  - Acute kidney injury [Recovering/Resolving]
  - Hypotension [Recovered/Resolved]
  - Lactic acidosis [Recovered/Resolved]
  - Hypoglycaemia [Recovered/Resolved]
  - Deafness [Not Recovered/Not Resolved]

NARRATIVE: CASE EVENT DATE: 202011
